FAERS Safety Report 5258355-4 (Version None)
Quarter: 2007Q1

REPORT INFORMATION
  Report Type: 
  Country: None (occurrence: None)
  Receive Date: 20070306
  Receipt Date: 20070306
  Transmission Date: 20070707
  Serious: Yes (Life-Threatening, Hospitalization)
  Sender: FDA-Public Use
  Company Number: None

PATIENT
  Sex: Female
  Weight: 96.6 kg

DRUGS (17)
  1. ADENOSINE [Suspect]
     Dosage: ONCE IV
     Route: 042
     Dates: start: 20070226
  2. DEPAKOTE [Concomitant]
  3. MS CONTIN [Concomitant]
  4. GABAPENTIN [Concomitant]
  5. SINGULAIR [Concomitant]
  6. ADVAIR DISKUS 100/50 [Concomitant]
  7. LISINOPRIL [Concomitant]
  8. PLAVIX [Concomitant]
  9. ASPIRIN [Concomitant]
  10. PLAQUENIL [Concomitant]
  11. LOVENOX [Concomitant]
  12. PROZAC [Concomitant]
  13. AVELOX [Concomitant]
  14. PROTONIX [Concomitant]
  15. PREDNISONE [Concomitant]
  16. ZOCOR [Concomitant]
  17. KLONAZEPAM [Concomitant]

REACTIONS (3)
  - DYSPNOEA [None]
  - OXYGEN SATURATION DECREASED [None]
  - RESPIRATORY ARREST [None]
